FAERS Safety Report 23056032 (Version 1)
Quarter: 2023Q4

REPORT INFORMATION
  Report Type: Spontaneous
  Country: US (occurrence: US)
  Receive Date: 20231011
  Receipt Date: 20231011
  Transmission Date: 20240110
  Serious: No
  Sender: FDA-Public Use
  Company Number: US-NOVAST LABORATORIES INC.-2023NOV000280

PATIENT

DRUGS (4)
  1. NIFEDIPINE [Suspect]
     Active Substance: NIFEDIPINE
     Indication: Blood pressure measurement
     Dosage: 30 MILLIGRAM
     Route: 065
     Dates: start: 202111, end: 20230628
  2. NIFEDIPINE [Suspect]
     Active Substance: NIFEDIPINE
     Indication: Congenital cystic kidney disease
     Dosage: 30 MILLIGRAM
     Route: 065
     Dates: start: 20230702
  3. NEBIVOLOL [Suspect]
     Active Substance: NEBIVOLOL
     Indication: Congenital cystic kidney disease
     Dosage: UNK
     Route: 065
     Dates: start: 202301, end: 20230628
  4. NEBIVOLOL [Suspect]
     Active Substance: NEBIVOLOL
     Indication: Blood pressure measurement

REACTIONS (7)
  - Retching [Recovering/Resolving]
  - Swollen tongue [Recovering/Resolving]
  - Throat tightness [Recovering/Resolving]
  - Weight decreased [Recovering/Resolving]
  - Constipation [Recovering/Resolving]
  - Dysphagia [Recovering/Resolving]
  - Product use in unapproved indication [Unknown]

NARRATIVE: CASE EVENT DATE: 20230501
